FAERS Safety Report 9348857 (Version 2)
Quarter: 2013Q3

REPORT INFORMATION
  Report Type: Spontaneous
  Country: FR (occurrence: FR)
  Receive Date: 20130614
  Receipt Date: 20130709
  Transmission Date: 20140515
  Serious: Yes (Hospitalization)
  Sender: FDA-Public Use
  Company Number: FR-TEVA-412432ISR

PATIENT
  Age: 74 Year
  Sex: Female

DRUGS (2)
  1. FUROSEMIDE TEVA 40 MG [Suspect]
     Dosage: 40 MILLIGRAM DAILY; IN THE MORNING
     Route: 048
  2. INSULIN [Concomitant]
     Indication: DIABETES MELLITUS

REACTIONS (7)
  - Generalised oedema [Recovered/Resolved]
  - Cardiac failure [Recovering/Resolving]
  - Anaemia [Recovering/Resolving]
  - Weight increased [Recovered/Resolved]
  - Fall [Unknown]
  - Fatigue [Recovering/Resolving]
  - Somnolence [Recovering/Resolving]
